FAERS Safety Report 5779392-7 (Version None)
Quarter: 2008Q2

REPORT INFORMATION
  Report Type: 
  Country: None (occurrence: None)
  Receive Date: 20080619
  Receipt Date: 20070703
  Transmission Date: 20081010
  Serious: No
  Sender: FDA-Public Use
  Company Number: US-ASTRAZENECA-2007UW15630

PATIENT
  Sex: Male

DRUGS (2)
  1. ATACAND [Suspect]
     Route: 048
  2. AVAPRO [Suspect]

REACTIONS (1)
  - SEXUAL DYSFUNCTION [None]
